FAERS Safety Report 10214548 (Version 1)
Quarter: 2014Q2

REPORT INFORMATION
  Report Type: Report from Study
  Country: FR (occurrence: FR)
  Receive Date: 20140603
  Receipt Date: 20140603
  Transmission Date: 20141212
  Serious: Yes (Other)
  Sender: FDA-Public Use
  Company Number: FR-TEVA-484734ISR

PATIENT
  Age: 56 Year
  Sex: Male
  Weight: 64 kg

DRUGS (2)
  1. AZILECT [Suspect]
     Indication: PARKINSON^S DISEASE
     Dosage: 1 TABLET DAILY;
     Route: 048
     Dates: start: 20140409, end: 20140508
  2. ALPRAZOLAM 0.25MG [Concomitant]
     Indication: ANXIETY
     Dosage: 2 DOSAGE FORMS DAILY; LONG-TERM TREATMENT
     Route: 048

REACTIONS (2)
  - Dizziness [Recovered/Resolved]
  - Head discomfort [Recovered/Resolved]
